FAERS Safety Report 7831575-8 (Version None)
Quarter: 2011Q4

REPORT INFORMATION
  Report Type: 
  Country: None (occurrence: None)
  Receive Date: 20111021
  Receipt Date: 20111017
  Transmission Date: 20120403
  Serious: Yes (Hospitalization)
  Sender: FDA-Public Use
  Company Number: ES-B.I. PHARMACEUTICALS,INC./RIDGEFIELD-2011-ES-00234ES

PATIENT
  Sex: Female

DRUGS (4)
  1. LANSOPRAZOLE [Concomitant]
  2. PRADAXA [Suspect]
     Dosage: 150 MG
     Dates: start: 20110222, end: 20110302
  3. DEXKETOPROFENO [Concomitant]
  4. HEPARIN [Concomitant]
     Dates: start: 20110215, end: 20110221

REACTIONS (3)
  - GASTROINTESTINAL HAEMORRHAGE [None]
  - RECTAL HAEMORRHAGE [None]
  - VOMITING [None]
